FAERS Safety Report 9124446 (Version 1)
Quarter: 2013Q1

REPORT INFORMATION
  Report Type: Spontaneous
  Country: US (occurrence: US)
  Receive Date: 20130116
  Receipt Date: 20130116
  Transmission Date: 20140127
  Serious: Yes (Hospitalization)
  Sender: FDA-Public Use
  Company Number: US-PURDUE-USA-2013-0097621

PATIENT
  Age: 56 Year
  Sex: Male

DRUGS (1)
  1. BUTRANS [Suspect]
     Indication: PRODUCT USED FOR UNKNOWN INDICATION
     Dosage: 10 MCG, Q1H
     Route: 062

REACTIONS (3)
  - Chronic obstructive pulmonary disease [Not Recovered/Not Resolved]
  - Respiratory depression [Recovered/Resolved]
  - Intentional drug misuse [Unknown]
